FAERS Safety Report 8985824 (Version 2)
Quarter: 2013Q1

REPORT INFORMATION
  Report Type: Spontaneous
  Country: JP (occurrence: JP)
  Receive Date: 20121226
  Receipt Date: 20130125
  Transmission Date: 20140127
  Serious: Yes (Hospitalization, Other)
  Sender: FDA-Public Use
  Company Number: JP-ASTRAZENECA-2012SE95204

PATIENT
  Sex: 0

DRUGS (1)
  1. XYLOCAINE POLYAMP [Suspect]
     Indication: INFILTRATION ANAESTHESIA
     Dosage: ABOUT 5 TO 8 ML (50 - 80 MG)
     Route: 058
     Dates: start: 20121217, end: 20121217

REACTIONS (3)
  - Monoplegia [Recovered/Resolved]
  - Hypoaesthesia [Recovered/Resolved]
  - Incorrect route of drug administration [Unknown]
